FAERS Safety Report 4375808-1 (Version None)
Quarter: 2004Q2

REPORT INFORMATION
  Report Type: 
  Country: None (occurrence: None)
  Receive Date: 20040609
  Receipt Date: 20040609
  Transmission Date: 20050107
  Serious: Yes (Hospitalization)
  Sender: FDA-Public Use
  Company Number: None

PATIENT
  Sex: Male

DRUGS (3)
  1. TYLENOL PM [Suspect]
     Dosage: PO (FREQUENCY UNAVAILABLE)
     Route: 048
     Dates: start: 20040329
  2. ALBUTEROL [Concomitant]
  3. EFFEXOR [Concomitant]

REACTIONS (8)
  - ASTHENIA [None]
  - DRUG LEVEL ABOVE THERAPEUTIC [None]
  - FATIGUE [None]
  - FEELING ABNORMAL [None]
  - INCOHERENT [None]
  - MEDICATION ERROR [None]
  - OVERDOSE [None]
  - RESTLESSNESS [None]
